FAERS Safety Report 17055966 (Version 2)
Quarter: 2020Q1

REPORT INFORMATION
  Report Type: Report from Study
  Country: US (occurrence: US)
  Receive Date: 20191120
  Receipt Date: 20200316
  Transmission Date: 20200409
  Serious: No
  Sender: FDA-Public Use
  Company Number: NVSC2019US041799

PATIENT
  Age: 1 Year
  Sex: Female
  Weight: 7.4 kg

DRUGS (1)
  1. ZOLGENSMA [Suspect]
     Active Substance: ONASEMNOGENE ABEPARVOVEC-XIOI
     Indication: SPINAL MUSCULAR ATROPHY
     Dosage: UNK, ONCE/SINGLE (1.1 X 10 TO THE 14TH VECTOR GENOMES (VG) PER KG OF BODY WEIGHT)
     Route: 042
     Dates: start: 20191113, end: 20191113

REACTIONS (1)
  - Body temperature decreased [Unknown]

NARRATIVE: CASE EVENT DATE: 20191116
